FAERS Safety Report 10468041 (Version 1)
Quarter: 2014Q3

REPORT INFORMATION
  Report Type: Spontaneous
  Country: US (occurrence: US)
  Receive Date: 20140922
  Receipt Date: 20140922
  Transmission Date: 20150326
  Serious: Yes (Other)
  Sender: FDA-Public Use
  Company Number: CHPA2014US012322

PATIENT
  Age: 71 Year
  Sex: Female

DRUGS (2)
  1. EXCEDRIN MIGRAINE [Suspect]
     Active Substance: ACETAMINOPHEN\ASPIRIN\CAFFEINE
     Indication: MIGRAINE
     Dosage: 1 OR 2 DF, UNK
     Route: 048
  2. HYDROCODONE [Concomitant]
     Active Substance: HYDROCODONE
     Dosage: UNK,UNK

REACTIONS (7)
  - Wrong technique in drug usage process [Unknown]
  - Systemic lupus erythematosus [Not Recovered/Not Resolved]
  - Feeling jittery [Recovered/Resolved]
  - Expired product administered [Unknown]
  - Cardiomegaly [Not Recovered/Not Resolved]
  - Asthma [Unknown]
  - Dyspnoea [Recovered/Resolved]
